FAERS Safety Report 9452267 (Version 1)
Quarter: 2013Q3

REPORT INFORMATION
  Report Type: Spontaneous
  Country: US (occurrence: US)
  Receive Date: 20130812
  Receipt Date: 20130812
  Transmission Date: 20140515
  Serious: No
  Sender: FDA-Public Use
  Company Number: US-B.I. PHARMACEUTICALS,INC./RIDGEFIELD-2013-BI-24262BP

PATIENT
  Age: 25 Year
  Sex: Female

DRUGS (3)
  1. ZANTAC (RANITIDINE HYDROCHLORIDE) [Suspect]
     Indication: GASTROOESOPHAGEAL REFLUX DISEASE
     Dosage: 150 MG
     Route: 048
     Dates: start: 20130807
  2. ZANTAC (RANITIDINE HYDROCHLORIDE) [Suspect]
     Dosage: 75 MG
     Route: 048
     Dates: start: 2013, end: 20130806
  3. PRENATAL VITAMIN [Concomitant]
     Route: 048

REACTIONS (2)
  - Drug screen positive [Recovered/Resolved]
  - Pregnancy [Unknown]
